FAERS Safety Report 5868915-5 (Version None)
Quarter: 2008Q3

REPORT INFORMATION
  Report Type: 
  Country: None (occurrence: None)
  Receive Date: 20080903
  Receipt Date: 20080825
  Transmission Date: 20090109
  Serious: Yes (Hospitalization, Other)
  Sender: FDA-Public Use
  Company Number: US-MERCK-0705USA05348

PATIENT
  Age: 62 Year
  Sex: Female

DRUGS (2)
  1. FOSAMAX [Suspect]
     Indication: OSTEOPOROSIS
     Route: 048
     Dates: start: 20020101, end: 20050201
  2. FOSAMAX [Suspect]
     Route: 048
     Dates: start: 20050404

REACTIONS (9)
  - ABSCESS [None]
  - EXOSTOSIS [None]
  - HYPERTENSION [None]
  - LUNG CARCINOMA CELL TYPE UNSPECIFIED STAGE 0 [None]
  - ORAL INFECTION [None]
  - OSTEOMYELITIS [None]
  - OSTEONECROSIS [None]
  - SMALL INTESTINE CARCINOMA RECURRENT [None]
  - TOOTH LOSS [None]
